FAERS Safety Report 23052750 (Version 1)
Quarter: 2023Q4

REPORT INFORMATION
  Report Type: Spontaneous
  Country: FR (occurrence: FR)
  Receive Date: 20231011
  Receipt Date: 20231011
  Transmission Date: 20240110
  Serious: Yes (Hospitalization, Other)
  Sender: FDA-Public Use
  Company Number: FR-AFSSAPS-MP2023001727

PATIENT
  Age: 68 Year
  Sex: Male
  Weight: 40.6 kg

DRUGS (2)
  1. OXYCODONE [Suspect]
     Active Substance: OXYCODONE
     Indication: Analgesic therapy
     Dosage: 10 MILLIGRAM, ONCE A DAY
     Route: 048
     Dates: start: 202308
  2. ATORVASTATIN [Suspect]
     Active Substance: ATORVASTATIN
     Indication: Product used for unknown indication
     Dosage: 10 MILLIGRAM, ONCE A DAY
     Route: 048
     Dates: end: 202309

REACTIONS (2)
  - Cholestatic liver injury [Unknown]
  - Lipase increased [Unknown]

NARRATIVE: CASE EVENT DATE: 20230827
